FAERS Safety Report 5987251-X (Version None)
Quarter: 2008Q4

REPORT INFORMATION
  Report Type: 
  Country: None (occurrence: None)
  Receive Date: 20081209
  Receipt Date: 20081202
  Transmission Date: 20090506
  Serious: Yes (Hospitalization)
  Sender: FDA-Public Use
  Company Number: FR-MERCK-0811FRA00046

PATIENT
  Age: 58 Year
  Sex: Male

DRUGS (4)
  1. ISENTRESS [Suspect]
     Indication: HIV INFECTION
     Route: 048
     Dates: start: 20080626, end: 20081119
  2. BISOPROLOL [Concomitant]
     Indication: HYPERTENSION
     Route: 048
  3. SUSTIVA [Concomitant]
     Indication: HIV INFECTION
     Route: 065
  4. METFORMIN [Suspect]
     Indication: HYPERGLYCAEMIA
     Route: 048
     Dates: start: 20081001, end: 20081119

REACTIONS (2)
  - DIABETES MELLITUS [None]
  - OPTIC NEURITIS [None]
